FAERS Safety Report 7177789-4 (Version None)
Quarter: 2010Q4

REPORT INFORMATION
  Report Type: 
  Country: None (occurrence: None)
  Receive Date: 20101123
  Receipt Date: 20100806
  Transmission Date: 20110411
  Serious: No
  Sender: FDA-Public Use
  Company Number: 016863

PATIENT
  Sex: Male

DRUGS (2)
  1. CIMZIA [Suspect]
     Indication: COLITIS ULCERATIVE
     Dosage: (DELAYED CIMZIA DOSE FOR FEW WEEKS SUBCUTANEOUS) ; (DOSE RESUMED SUBCUTANEOUS)
     Route: 058
     Dates: start: 20090402
  2. METHOTREXATE [Suspect]
     Dates: start: 20100101

REACTIONS (5)
  - COLITIS ULCERATIVE [None]
  - DIARRHOEA [None]
  - FATIGUE [None]
  - GASTRITIS [None]
  - MALAISE [None]
